FAERS Safety Report 11386017 (Version 1)
Quarter: 2015Q3

REPORT INFORMATION
  Report Type: Spontaneous
  Country: US (occurrence: US)
  Receive Date: 20150817
  Receipt Date: 20150817
  Transmission Date: 20151125
  Serious: Yes (Death, Hospitalization, Other)
  Sender: FDA-Public Use
  Company Number: US-AUROBINDO-AUR-APL-2013-04424

PATIENT

DRUGS (5)
  1. CLOPIDOGREL [Suspect]
     Active Substance: CLOPIDOGREL BISULFATE
     Indication: MYOCARDIAL INFARCTION
     Dosage: 150 MG,DAILY,
     Route: 065
     Dates: start: 200711, end: 201112
  2. CLOPIDOGREL [Suspect]
     Active Substance: CLOPIDOGREL BISULFATE
     Dosage: 150 MG,DAILY,,DOUBLE DAILY DOSE FOR THE INITIAL 13 MONTHS
     Route: 065
     Dates: start: 200711, end: 200812
  3. CLOPIDOGREL [Suspect]
     Active Substance: CLOPIDOGREL BISULFATE
     Dosage: 75 MG,DAILY,
     Route: 065
  4. PRASUGREL [Suspect]
     Active Substance: PRASUGREL
     Indication: MYOCARDIAL INFARCTION
     Dosage: 10 MG,DAILY,
     Route: 065
     Dates: start: 20120101
  5. ACETYLSALICYLIC ACID [Concomitant]
     Active Substance: ASPIRIN
     Indication: MYOCARDIAL INFARCTION
     Dosage: 81 MG,DAILY,
     Route: 065

REACTIONS (19)
  - Pneumonia [Unknown]
  - Dyspnoea [Fatal]
  - Petechiae [Fatal]
  - Blindness [Fatal]
  - Sepsis [Fatal]
  - Disorientation [Fatal]
  - Dizziness [Fatal]
  - Cough [Unknown]
  - Overdose [Unknown]
  - Urinary tract infection enterococcal [Unknown]
  - Asthenia [Fatal]
  - Organ failure [Fatal]
  - Off label use [Fatal]
  - Sinusitis [Unknown]
  - Confusional state [Fatal]
  - Systemic inflammatory response syndrome [Fatal]
  - Contusion [Unknown]
  - Headache [Fatal]
  - Pallor [Fatal]
